FAERS Safety Report 17406193 (Version 1)
Quarter: 2020Q1

REPORT INFORMATION
  Report Type: Spontaneous
  Country: CA (occurrence: CA)
  Receive Date: 20200212
  Receipt Date: 20200212
  Transmission Date: 20200409
  Serious: Yes (Other)
  Sender: FDA-Public Use
  Company Number: CA-TEVA-2020-CA-1182624

PATIENT
  Age: 11 Year
  Sex: Male
  Weight: 28 kg

DRUGS (35)
  1. CEFTAZIDIME. [Concomitant]
     Active Substance: CEFTAZIDIME
     Route: 030
  2. GRANISETRON [Concomitant]
     Active Substance: GRANISETRON
  3. LANSOPRAZOLE. [Concomitant]
     Active Substance: LANSOPRAZOLE
  4. METOCLOPRAMIDE. [Concomitant]
     Active Substance: METOCLOPRAMIDE
  5. ONDANSETRON [Concomitant]
     Active Substance: ONDANSETRON
  6. TRIMETHOPRIM SULFAMETHOXAZOLE [Concomitant]
     Active Substance: SULFAMETHOXAZOLE\TRIMETHOPRIM
  7. CALCIUM CARBONATE. [Concomitant]
     Active Substance: CALCIUM CARBONATE
  8. TAMIFLU [Concomitant]
     Active Substance: OSELTAMIVIR PHOSPHATE
  9. DEXAMETHASONE. [Concomitant]
     Active Substance: DEXAMETHASONE
  10. MORPHINE [Concomitant]
     Active Substance: MORPHINE
  11. RANITIDINE. [Concomitant]
     Active Substance: RANITIDINE
  12. TOBRAMYCIN. [Concomitant]
     Active Substance: TOBRAMYCIN
  13. MERCAPTOPURINE. [Concomitant]
     Active Substance: MERCAPTOPURINE
     Indication: ACUTE LYMPHOCYTIC LEUKAEMIA
     Route: 042
  14. ACETAMINOPHEN. [Concomitant]
     Active Substance: ACETAMINOPHEN
  15. AMOXICILLIN. [Concomitant]
     Active Substance: AMOXICILLIN
  16. DIPHENHYDRAMINE. [Concomitant]
     Active Substance: DIPHENHYDRAMINE
  17. NYSTATIN. [Concomitant]
     Active Substance: NYSTATIN
  18. POLYETHYLENE GLYCOL [Concomitant]
     Active Substance: POLYETHYLENE GLYCOLS
  19. TICARCILLIN [Concomitant]
     Active Substance: TICARCILLIN
  20. CHOLECALCIFEROL [Concomitant]
     Active Substance: CHOLECALCIFEROL
  21. DIMENHYDRINATE. [Concomitant]
     Active Substance: DIMENHYDRINATE
  22. DOCUSATE [Concomitant]
     Active Substance: DOCUSATE
  23. FAMCICLOVIR. [Concomitant]
     Active Substance: FAMCICLOVIR
  24. FENTANYL. [Concomitant]
     Active Substance: FENTANYL
  25. PIPERACILLIN/TAZOBACTAM [Concomitant]
     Active Substance: PIPERACILLIN SODIUM\TAZOBACTAM SODIUM
  26. ZOLEDRONIC ACID [Concomitant]
     Active Substance: ZOLEDRONIC ACID
  27. DOXORUBICIN HYDROCHLORIDE. [Suspect]
     Active Substance: DOXORUBICIN HYDROCHLORIDE
     Indication: PRODUCT USED FOR UNKNOWN INDICATION
     Route: 065
  28. ALLOPURINOL. [Concomitant]
     Active Substance: ALLOPURINOL
  29. GABAPENTIN. [Concomitant]
     Active Substance: GABAPENTIN
  30. HEPARIN PORCINE [Concomitant]
  31. HYDROCORTISONE. [Concomitant]
     Active Substance: HYDROCORTISONE
  32. PENTAMIDINE ISETHIONATE. [Concomitant]
     Active Substance: PENTAMIDINE ISETHIONATE
  33. POTASSIUM CHLORIDE. [Concomitant]
     Active Substance: POTASSIUM CHLORIDE
  34. CYTARABINE. [Suspect]
     Active Substance: CYTARABINE
     Indication: ACUTE LYMPHOCYTIC LEUKAEMIA
     Route: 037
  35. FOLIC ACID NATURAL FACTORS [Concomitant]

REACTIONS (1)
  - Cardiotoxicity [Unknown]
